FAERS Safety Report 20469921 (Version 2)
Quarter: 2022Q1

REPORT INFORMATION
  Report Type: Spontaneous
  Country: NL (occurrence: NL)
  Receive Date: 20220214
  Receipt Date: 20220317
  Transmission Date: 20220423
  Serious: Yes (Hospitalization)
  Sender: FDA-Public Use
  Company Number: None

PATIENT
  Age: 2 Year
  Sex: Female
  Weight: 12.6 kg

DRUGS (9)
  1. VANCOMYCIN HYDROCHLORIDE [Suspect]
     Active Substance: VANCOMYCIN HYDROCHLORIDE
     Indication: Sepsis
     Dosage: 200 MG, 4X/DAY
     Route: 042
     Dates: start: 20210618
  2. VANCOMYCIN HYDROCHLORIDE [Suspect]
     Active Substance: VANCOMYCIN HYDROCHLORIDE
     Dosage: 300 MG, 4X/DAY
     Route: 042
     Dates: end: 20210621
  3. URSODEOXYCHOL ACID [Concomitant]
     Dosage: 125 MG, 2X/DAY
  4. GLUCOGEL [Concomitant]
     Dosage: UNK, AS NEEDED
  5. TAUROLIDINE [Concomitant]
     Active Substance: TAUROLIDINE
     Dosage: 2 ML, 1X/DAY
     Route: 042
  6. WARFARIN [Concomitant]
     Active Substance: WARFARIN
     Dosage: 0.6 ML, 1X/DAY
  7. METRONIDAZOLE [Concomitant]
     Active Substance: METRONIDAZOLE
     Dosage: 130 MG, 3X/DAY
  8. SODIUM CHLORIDE [Concomitant]
     Active Substance: SODIUM CHLORIDE
     Dosage: UNK, AS NEEDED
     Route: 042
  9. CEFUROXIME [Concomitant]
     Active Substance: CEFUROXIME
     Dosage: 440 MG, 3X/DAY
     Dates: start: 20210618, end: 20210621

REACTIONS (3)
  - Aspartate aminotransferase increased [Recovered/Resolved]
  - Alanine aminotransferase increased [Recovered/Resolved]
  - Off label use [Unknown]

NARRATIVE: CASE EVENT DATE: 20210618
